FAERS Safety Report 8585179-2 (Version None)
Quarter: 2012Q3

REPORT INFORMATION
  Report Type: 
  Country: None (occurrence: None)
  Receive Date: 20120810
  Receipt Date: 20120807
  Transmission Date: 20120928
  Serious: Yes (Death)
  Sender: FDA-Public Use
  Company Number: PHHY2012MX068700

PATIENT
  Sex: Female

DRUGS (2)
  1. FORADIL [Suspect]
     Indication: ASTHMA
  2. FORADIL [Suspect]
     Indication: CHRONIC OBSTRUCTIVE PULMONARY DISEASE
     Dosage: 1 DF, QD

REACTIONS (1)
  - DEATH [None]
